FAERS Safety Report 5849655-5 (Version None)
Quarter: 2008Q3

REPORT INFORMATION
  Report Type: 
  Country: None (occurrence: None)
  Receive Date: 20080818
  Receipt Date: 20080818
  Transmission Date: 20090109
  Serious: Yes (Other)
  Sender: FDA-Public Use
  Company Number: None

PATIENT
  Age: 58 Year
  Sex: Female
  Weight: 77.1115 kg

DRUGS (2)
  1. ACTONEL [Suspect]
     Indication: BONE DENSITY DECREASED
     Dosage: 35 MG 1 PILL WEEKLY PO
     Route: 048
     Dates: start: 20050101, end: 20080402
  2. BONIVA [Suspect]
     Indication: BONE DENSITY DECREASED
     Dosage: 150 MG 1 PILL MONTHLY PO
     Route: 048
     Dates: start: 20080801, end: 20080816

REACTIONS (1)
  - ARTHRALGIA [None]
